FAERS Safety Report 6816230-5 (Version None)
Quarter: 2010Q3

REPORT INFORMATION
  Report Type: 
  Country: None (occurrence: None)
  Receive Date: 20100701
  Receipt Date: 20100701
  Transmission Date: 20110219
  Serious: No
  Sender: FDA-Public Use
  Company Number: None

PATIENT
  Sex: Female
  Weight: 70.5 kg

DRUGS (13)
  1. AMPHETAMINE ER 15 MG TEVA [Suspect]
     Indication: ATTENTION DEFICIT/HYPERACTIVITY DISORDER
     Dosage: 15 MG TWICE A DAY 047
     Dates: start: 20100525, end: 20100529
  2. CLONAZEPAM [Concomitant]
  3. DEPAKOTE [Concomitant]
  4. ACETAMINOPHEN [Concomitant]
  5. DARVON-N [Concomitant]
  6. ESTRADIOL [Concomitant]
  7. FLONASE [Concomitant]
  8. GLUCOSAMINE [Concomitant]
  9. METROGEL [Concomitant]
  10. MOBIC [Concomitant]
  11. NORVASC [Concomitant]
  12. OMEPRAZOLE [Concomitant]
  13. PAXIL [Concomitant]

REACTIONS (3)
  - DRUG INEFFECTIVE [None]
  - HEART RATE INCREASED [None]
  - SOMNOLENCE [None]
